FAERS Safety Report 25547887 (Version 2)
Quarter: 2025Q3

REPORT INFORMATION
  Report Type: Report from Study
  Country: US (occurrence: US)
  Receive Date: 20250714
  Receipt Date: 20250724
  Transmission Date: 20251020
  Serious: Yes (Death)
  Sender: ROCHE
  Company Number: US-ROCHE-10000336928

PATIENT
  Age: 50 Year
  Sex: Female

DRUGS (1)
  1. HERCEPTIN [Suspect]
     Active Substance: TRASTUZUMAB
     Indication: Neoplasm malignant
     Dosage: INFUSE (4MG/KG) 299MG INTRAVENOUSLY EVERY 2 WEEK(S)
     Route: 042

REACTIONS (1)
  - Death [Fatal]
